FAERS Safety Report 8624114-5 (Version None)
Quarter: 2012Q3

REPORT INFORMATION
  Report Type: 
  Country: None (occurrence: None)
  Receive Date: 20120824
  Receipt Date: 20120824
  Transmission Date: 20120928
  Serious: Yes (Other)
  Sender: FDA-Public Use
  Company Number: None

PATIENT
  Sex: Male

DRUGS (1)
  1. ZYTIGA [Suspect]
     Indication: PROSTATE CANCER
     Dosage: 1000MG DAILY PO
     Route: 048
     Dates: start: 20120731, end: 20120822

REACTIONS (4)
  - DIARRHOEA [None]
  - DEPRESSION [None]
  - ARTHRITIS [None]
  - MUSCULOSKELETAL PAIN [None]
